FAERS Safety Report 17624492 (Version 2)
Quarter: 2020Q2

REPORT INFORMATION
  Report Type: Spontaneous
  Country: CA (occurrence: CA)
  Receive Date: 20200403
  Receipt Date: 20200417
  Transmission Date: 20200713
  Serious: Yes (Hospitalization, Other)
  Sender: FDA-Public Use
  Company Number: CA-ASCEND THERAPEUTICS US, LLC-2082300

PATIENT
  Age: 52 Year
  Sex: Female

DRUGS (6)
  1. GLICLAZIDE (GLICLAZIDE) (TABLETS), UNKNOWN [Concomitant]
  2. PROMETRIUM [Suspect]
     Active Substance: PROGESTERONE
     Route: 065
  3. PRASTERONE (PRASTERONE), UNKNOWN [Suspect]
     Active Substance: PRASTERONE
     Route: 067
  4. ESTROGEL [Suspect]
     Active Substance: ESTRADIOL
     Indication: PRODUCT USED FOR UNKNOWN INDICATION
     Route: 065
  5. BUDESONIDE. [Suspect]
     Active Substance: BUDESONIDE
     Route: 065
  6. LORATADINE. [Suspect]
     Active Substance: LORATADINE
     Route: 048

REACTIONS (10)
  - Periorbital oedema [Unknown]
  - Tinnitus [Unknown]
  - Head discomfort [Unknown]
  - Feeling hot [Unknown]
  - Cellulitis [Unknown]
  - Rash [Unknown]
  - Butterfly rash [Unknown]
  - Photosensitivity reaction [Unknown]
  - Swelling face [Unknown]
  - Product use in unapproved indication [Unknown]
